FAERS Safety Report 19549427 (Version 1)
Quarter: 2021Q3

REPORT INFORMATION
  Report Type: Spontaneous
  Country: US (occurrence: US)
  Receive Date: 20210715
  Receipt Date: 20210715
  Transmission Date: 20211014
  Serious: Yes (Hospitalization)
  Sender: FDA-Public Use
  Company Number: None

PATIENT
  Sex: Female
  Weight: 61.2 kg

DRUGS (4)
  1. IRINOTECAN 9CPT?11, CAMPTOSAR) [Concomitant]
  2. 5?FLUOROURACIL (5?FU) [Suspect]
     Active Substance: FLUOROURACIL
  3. ELOXATIN [Suspect]
     Active Substance: OXALIPLATIN
  4. LEUCOVORIN CALCIUM. [Concomitant]
     Active Substance: LEUCOVORIN CALCIUM

REACTIONS (5)
  - Vomiting [None]
  - Nausea [None]
  - Cholelithiasis [None]
  - Blood culture positive [None]
  - Abdominal pain [None]

NARRATIVE: CASE EVENT DATE: 20210618
